FAERS Safety Report 4413153-6 (Version None)
Quarter: 2004Q3

REPORT INFORMATION
  Report Type: 
  Country: None (occurrence: None)
  Receive Date: 20040802
  Receipt Date: 20040802
  Transmission Date: 20050211
  Serious: Yes (Other)
  Sender: FDA-Public Use
  Company Number: None

PATIENT
  Age: 12 Year
  Sex: Female
  Weight: 49.4421 kg

DRUGS (1)
  1. DUAC [Suspect]
     Indication: ACNE
     Dosage: BID - TOPICAL APPLICATION
     Route: 061

REACTIONS (5)
  - DRY SKIN [None]
  - ERYTHEMA [None]
  - RASH MACULAR [None]
  - SKIN DISCOLOURATION [None]
  - SKIN INFLAMMATION [None]
